FAERS Safety Report 5418997-X (Version None)
Quarter: 2007Q3

REPORT INFORMATION
  Report Type: 
  Country: None (occurrence: None)
  Receive Date: 20070817
  Receipt Date: 20070807
  Transmission Date: 20080115
  Serious: Yes (Other)
  Sender: FDA-Public Use
  Company Number: IE-PFIZER INC-2007066664

PATIENT

DRUGS (1)
  1. PHENYTOIN [Suspect]

REACTIONS (2)
  - MALAISE [None]
  - NEOPLASM MALIGNANT [None]
